FAERS Safety Report 6232018-0 (Version None)
Quarter: 2009Q2

REPORT INFORMATION
  Report Type: 
  Country: None (occurrence: None)
  Receive Date: 20090616
  Receipt Date: 20090611
  Transmission Date: 20091009
  Serious: Yes (Death, Other)
  Sender: FDA-Public Use
  Company Number: US-CELGENEUS-163-21880-09051768

PATIENT
  Sex: Male

DRUGS (5)
  1. REVLIMID [Suspect]
     Indication: MULTIPLE MYELOMA
     Route: 048
     Dates: start: 20090301, end: 20090517
  2. REVLIMID [Suspect]
     Route: 048
     Dates: start: 20060301, end: 20060401
  3. REVLIMID [Suspect]
     Route: 048
     Dates: start: 20071201, end: 20080401
  4. REVLIMID [Suspect]
     Dosage: 10MG-15MG
     Route: 048
     Dates: start: 20081229, end: 20090201
  5. LOVENOX [Concomitant]
     Indication: DRUG USE FOR UNKNOWN INDICATION
     Route: 058

REACTIONS (15)
  - AGGRESSION [None]
  - ANAEMIA [None]
  - ANOREXIA [None]
  - DEATH [None]
  - EPISTAXIS [None]
  - FATIGUE [None]
  - FULL BLOOD COUNT ABNORMAL [None]
  - HAEMOGLOBIN DECREASED [None]
  - INCOHERENT [None]
  - MEMORY IMPAIRMENT [None]
  - MYOCARDIAL INFARCTION [None]
  - NEUTROPHIL COUNT DECREASED [None]
  - PLATELET COUNT DECREASED [None]
  - PROTHROMBIN TIME PROLONGED [None]
  - WEIGHT DECREASED [None]
